FAERS Safety Report 5999389-1 (Version None)
Quarter: 2008Q4

REPORT INFORMATION
  Report Type: 
  Country: None (occurrence: None)
  Receive Date: 20081211
  Receipt Date: 20081201
  Transmission Date: 20090506
  Serious: Yes (Death, Hospitalization)
  Sender: FDA-Public Use
  Company Number: 232483K08USA

PATIENT
  Age: 58 Year
  Sex: Male
  Weight: 80 kg

DRUGS (4)
  1. REBIF [Suspect]
     Indication: MULTIPLE SCLEROSIS
     Dosage: 44 MCG, 3 IN 1 WEEKS, SUBCUTANEOUS
     Route: 058
     Dates: start: 20070129, end: 20080925
  2. LISINOPRIL [Concomitant]
  3. SEROQUEL [Concomitant]
  4. CLONIDINE [Concomitant]

REACTIONS (6)
  - BACTERIAL INFECTION [None]
  - BLOOD DISORDER [None]
  - DEMENTIA [None]
  - HYPOPHAGIA [None]
  - HYPOTENSION [None]
  - PROGRESSIVE MULTIPLE SCLEROSIS [None]
